FAERS Safety Report 9279116 (Version 2)
Quarter: 2013Q2

REPORT INFORMATION
  Report Type: Report from Study
  Country: DE (occurrence: DE)
  Receive Date: 20130508
  Receipt Date: 20130515
  Transmission Date: 20140414
  Serious: Yes (Hospitalization)
  Sender: FDA-Public Use
  Company Number: DE-BRISTOL-MYERS SQUIBB COMPANY-18871251

PATIENT
  Age: 73 Year
  Sex: Female
  Weight: 69 kg

DRUGS (6)
  1. CARBOPLATIN [Suspect]
     Indication: OVARIAN CANCER
     Dosage: LAST DOSE:07-NOV-2012
     Route: 042
     Dates: start: 20120926
  2. PACLITAXEL [Suspect]
     Indication: OVARIAN CANCER
     Dosage: LAST DOSE: 07-NOV-2012
     Route: 042
     Dates: start: 20120926
  3. BEVACIZUMAB [Suspect]
     Indication: OVARIAN CANCER
     Dosage: LAST DOSE: 07-NOV-2012
     Route: 042
     Dates: start: 20120926
  4. METOPROLOL [Concomitant]
     Indication: HYPERTENSION
     Dosage: LAST DOSE: 13-NOV-2012
     Route: 048
     Dates: start: 2002
  5. AMLODIPINE [Concomitant]
     Indication: HYPERTENSION
     Dosage: LAST DOSE: 13-NOV-2012
     Route: 048
     Dates: start: 2002
  6. L-THYROXINE [Concomitant]
     Indication: HYPOTHYROIDISM
     Dosage: LAST DOSE: 13-NOV-2012
     Route: 048
     Dates: start: 1959

REACTIONS (1)
  - Subileus [Recovered/Resolved]
